FAERS Safety Report 4284823-8 (Version None)
Quarter: 2004Q1

REPORT INFORMATION
  Report Type: 
  Country: None (occurrence: None)
  Receive Date: 20040203
  Receipt Date: 20040203
  Transmission Date: 20041129
  Serious: Yes (Hospitalization, Disabling)
  Sender: FDA-Public Use
  Company Number: None

PATIENT
  Sex: Female

DRUGS (2)
  1. ENOXAPARIN SODIUM [Suspect]
     Indication: BACK PAIN
     Dosage: MG
     Dates: start: 20031117, end: 20031118
  2. ENOXAPARIN SODIUM [Suspect]
     Indication: CHEST PAIN
     Dosage: MG
     Dates: start: 20031117, end: 20031118

REACTIONS (8)
  - COAGULOPATHY [None]
  - DIFFICULT TO WEAN FROM VENTILATOR [None]
  - INTRAVENTRICULAR HAEMORRHAGE [None]
  - PARAPLEGIA [None]
  - PNEUMONIA [None]
  - SPINAL CORD HAEMORRHAGE [None]
  - SUBARACHNOID HAEMORRHAGE [None]
  - SUBDURAL HAEMATOMA [None]
